FAERS Safety Report 8169571-6 (Version None)
Quarter: 2012Q1

REPORT INFORMATION
  Report Type: 
  Country: None (occurrence: None)
  Receive Date: 20120222
  Receipt Date: 20120215
  Transmission Date: 20120608
  Serious: Yes (Hospitalization, Other)
  Sender: FDA-Public Use
  Company Number: TPA2012A00729

PATIENT
  Age: 78 Year
  Sex: Male
  Weight: 95.709 kg

DRUGS (3)
  1. ACTOS [Suspect]
     Indication: TYPE 2 DIABETES MELLITUS
     Dosage: 15 MG, 1 IN 1 D, PER ORAL ; 30 MG 1 IN 1 D, PER ORAL ; 45 MG, 1 IN 1 D, PER ORAL
     Route: 048
     Dates: start: 20060101, end: 20110101
  2. ACTOS [Suspect]
     Indication: TYPE 2 DIABETES MELLITUS
     Dosage: 15 MG, 1 IN 1 D, PER ORAL ; 30 MG 1 IN 1 D, PER ORAL ; 45 MG, 1 IN 1 D, PER ORAL
     Route: 048
     Dates: start: 20050101, end: 20060101
  3. ACTOS [Suspect]
     Indication: TYPE 2 DIABETES MELLITUS
     Dosage: 15 MG, 1 IN 1 D, PER ORAL ; 30 MG 1 IN 1 D, PER ORAL ; 45 MG, 1 IN 1 D, PER ORAL
     Route: 048
     Dates: start: 20040101, end: 20050101

REACTIONS (7)
  - RENAL DISORDER [None]
  - CYSTITIS [None]
  - BONE LESION [None]
  - TRANSITIONAL CELL CARCINOMA METASTATIC [None]
  - URETERIC CANCER METASTATIC [None]
  - TRANSITIONAL CELL CARCINOMA [None]
  - METASTASES TO LUNG [None]
